FAERS Safety Report 18965143 (Version 1)
Quarter: 2021Q1

REPORT INFORMATION
  Report Type: Spontaneous
  Country: TW (occurrence: TW)
  Receive Date: 20210303
  Receipt Date: 20210303
  Transmission Date: 20210420
  Serious: Yes (Other)
  Sender: FDA-Public Use
  Company Number: NVSC2021TW045989

PATIENT
  Sex: Female
  Weight: 45.9 kg

DRUGS (20)
  1. TEGRETOL XR [Suspect]
     Active Substance: CARBAMAZEPINE
     Indication: TRIGEMINAL NEURALGIA
     Dosage: 1 DF, QD
     Route: 065
     Dates: start: 20180912, end: 20181003
  2. EUCLIDAN [Concomitant]
     Dosage: UNK
     Route: 065
     Dates: start: 20180912, end: 20181003
  3. EUCLIDAN [Concomitant]
     Dosage: UNK
     Route: 065
     Dates: start: 20190124
  4. METHYCOBAL [Concomitant]
     Active Substance: METHYLCOBALAMIN
     Dosage: UNK
     Route: 065
     Dates: start: 20181128, end: 20190123
  5. MEI TAN [Concomitant]
     Indication: PRODUCT USED FOR UNKNOWN INDICATION
     Dosage: UNK
     Route: 065
     Dates: start: 20180815, end: 20180912
  6. MEI TAN [Concomitant]
     Dosage: UNK
     Route: 065
     Dates: start: 20180912, end: 20181003
  7. EUCLIDAN [Concomitant]
     Dosage: UNK
     Route: 065
     Dates: start: 20181003
  8. METHYCOBAL [Concomitant]
     Active Substance: METHYLCOBALAMIN
     Indication: PRODUCT USED FOR UNKNOWN INDICATION
     Dosage: UNK
     Route: 065
     Dates: start: 20180815, end: 20180912
  9. METHYCOBAL [Concomitant]
     Active Substance: METHYLCOBALAMIN
     Dosage: UNK
     Route: 065
     Dates: start: 20181003
  10. TRILEPTAL [Suspect]
     Active Substance: OXCARBAZEPINE
     Indication: TRIGEMINAL NEURALGIA
     Dosage: 2 DF, QD (02 TABLETS)
     Route: 065
     Dates: start: 20170808
  11. FAMO [Concomitant]
     Indication: PRODUCT USED FOR UNKNOWN INDICATION
     Dosage: UNK
     Route: 065
     Dates: start: 20180815, end: 20180912
  12. FAMO [Concomitant]
     Dosage: UNK
     Route: 065
     Dates: start: 20180912, end: 20181003
  13. TRILEPTAL [Suspect]
     Active Substance: OXCARBAZEPINE
     Dosage: UNK
     Route: 065
     Dates: start: 20181128, end: 20190123
  14. TRILEPTAL [Suspect]
     Active Substance: OXCARBAZEPINE
     Dosage: UNK
     Route: 065
     Dates: start: 20190124
  15. TEGRETOL XR [Suspect]
     Active Substance: CARBAMAZEPINE
     Dosage: 0.5 DF, QD
     Route: 065
     Dates: start: 20181003
  16. EUCLIDAN [Concomitant]
     Dosage: UNK
     Route: 065
     Dates: start: 20181128, end: 20190123
  17. TRILEPTAL [Suspect]
     Active Substance: OXCARBAZEPINE
     Dosage: 2 DF, QD (02 TABLETS)
     Route: 065
     Dates: start: 20180815, end: 20180912
  18. EUCLIDAN [Concomitant]
     Indication: PRODUCT USED FOR UNKNOWN INDICATION
     Dosage: UNK
     Route: 065
     Dates: start: 20180815, end: 20180912
  19. METHYCOBAL [Concomitant]
     Active Substance: METHYLCOBALAMIN
     Dosage: UNK
     Route: 065
     Dates: start: 20190124
  20. METHYCOBAL [Concomitant]
     Active Substance: METHYLCOBALAMIN
     Dosage: UNK
     Route: 065
     Dates: start: 20180912, end: 20181003

REACTIONS (2)
  - Mouth ulceration [Recovering/Resolving]
  - Rash pruritic [Recovering/Resolving]

NARRATIVE: CASE EVENT DATE: 20180912
